FAERS Safety Report 7382742-1 (Version None)
Quarter: 2011Q1

REPORT INFORMATION
  Report Type: 
  Country: None (occurrence: None)
  Receive Date: 20110330
  Receipt Date: 20110322
  Transmission Date: 20110831
  Serious: No
  Sender: FDA-Public Use
  Company Number: US-BIOGENIDEC-2011BI008714

PATIENT
  Age: 42 Year
  Sex: Female

DRUGS (2)
  1. TYSABRI [Suspect]
     Indication: MULTIPLE SCLEROSIS
     Route: 042
     Dates: start: 20091217
  2. TYSABRI [Suspect]
     Route: 042
     Dates: start: 20080108, end: 20091028

REACTIONS (4)
  - FATIGUE [None]
  - SLUGGISHNESS [None]
  - PAIN IN EXTREMITY [None]
  - ASTHENIA [None]
